FAERS Safety Report 23641046 (Version 1)
Quarter: 2024Q1

REPORT INFORMATION
  Report Type: Spontaneous
  Country: US (occurrence: US)
  Receive Date: 20240318
  Receipt Date: 20240318
  Transmission Date: 20240410
  Serious: Yes (Other)
  Sender: FDA-Public Use
  Company Number: US-BRISTOL-MYERS SQUIBB COMPANY-2024-042154

PATIENT
  Age: 33 Year
  Sex: Female

DRUGS (5)
  1. SPRYCEL [Suspect]
     Active Substance: DASATINIB
     Indication: Acute lymphocytic leukaemia
     Route: 048
  2. VALACYCLOVIR HYDROCHLORIDE [Concomitant]
     Active Substance: VALACYCLOVIR HYDROCHLORIDE
     Indication: Product used for unknown indication
  3. DEXAMETHASONE [Concomitant]
     Active Substance: DEXAMETHASONE
     Indication: Product used for unknown indication
  4. SULFAMETHOXAZOLE [Concomitant]
     Active Substance: SULFAMETHOXAZOLE
     Indication: Product used for unknown indication
  5. MORPHINE SULFATE [Concomitant]
     Active Substance: MORPHINE SULFATE
     Indication: Product used for unknown indication
     Dosage: MORPHINE SULFATE CR

REACTIONS (1)
  - Acute lymphocytic leukaemia recurrent [Unknown]

NARRATIVE: CASE EVENT DATE: 20240101
